FAERS Safety Report 9852323 (Version 1)
Quarter: 2014Q1

REPORT INFORMATION
  Report Type: Spontaneous
  Country: US (occurrence: None)
  Receive Date: 20140128
  Receipt Date: 20140128
  Transmission Date: 20141002
  Serious: Yes (Other)
  Sender: FDA-Public Use
  Company Number: None

PATIENT
  Age: 33 Year
  Sex: Female

DRUGS (1)
  1. FLUVIRIN NOS [Suspect]
     Indication: INFLUENZA IMMUNISATION
     Route: 030
     Dates: start: 20140106, end: 20140109

REACTIONS (2)
  - Injection site pain [None]
  - Pain in extremity [None]
